FAERS Safety Report 8766450 (Version 1)
Quarter: 2012Q4

REPORT INFORMATION
  Report Type: Report from Study
  Country: AU (occurrence: AU)
  Receive Date: 20120904
  Receipt Date: 20120904
  Transmission Date: 20130627
  Serious: Yes (Other)
  Sender: FDA-Public Use
  Company Number: AU-ROCHE-1003220

PATIENT

DRUGS (2)
  1. MIRCERA [Suspect]
     Indication: NEPHROGENIC ANAEMIA
     Route: 040
  2. NEORECORMON [Suspect]
     Indication: NEPHROGENIC ANAEMIA
     Route: 042

REACTIONS (1)
  - Haematological malignancy [Unknown]
